FAERS Safety Report 5655989-X (Version None)
Quarter: 2008Q1

REPORT INFORMATION
  Report Type: 
  Country: None (occurrence: None)
  Receive Date: 20080307
  Receipt Date: 20071113
  Transmission Date: 20080703
  Serious: Yes (Death, Hospitalization)
  Sender: FDA-Public Use
  Company Number: JP-PFIZER INC-2008018225

PATIENT
  Age: 62 Year
  Sex: Female

DRUGS (3)
  1. PREDNISOLONE [Suspect]
     Indication: DERMATOMYOSITIS
  2. METHYLPREDNISOLONE 16MG TAB [Suspect]
  3. CYCLOSPORINE [Suspect]

REACTIONS (1)
  - INTERSTITIAL LUNG DISEASE [None]
